FAERS Safety Report 12964041 (Version 1)
Quarter: 2016Q4

REPORT INFORMATION
  Report Type: Spontaneous
  Country: BR (occurrence: BR)
  Receive Date: 20161122
  Receipt Date: 20161122
  Transmission Date: 20170207
  Serious: Yes (Life-Threatening)
  Sender: FDA-Public Use
  Company Number: PHHY2016BR159865

PATIENT
  Sex: Female
  Weight: 63 kg

DRUGS (3)
  1. TEGRETOL [Suspect]
     Active Substance: CARBAMAZEPINE
     Indication: NEURALGIA
     Dosage: UNK
     Route: 065
  2. XALATAN [Concomitant]
     Active Substance: LATANOPROST
     Indication: GLAUCOMA
     Dosage: UNK
     Route: 047
     Dates: start: 2000
  3. MORPHINE [Suspect]
     Active Substance: MORPHINE
     Indication: NEURALGIA
     Route: 065

REACTIONS (2)
  - Wound [Unknown]
  - Feeling abnormal [Unknown]
